FAERS Safety Report 6388936-6 (Version None)
Quarter: 2009Q4

REPORT INFORMATION
  Report Type: 
  Country: None (occurrence: None)
  Receive Date: 20091001
  Receipt Date: 20090924
  Transmission Date: 20100525
  Serious: Yes (Hospitalization, Other)
  Sender: FDA-Public Use
  Company Number: JP-1170804

PATIENT
  Age: 53 Year
  Sex: Female

DRUGS (1)
  1. TRAVATAN Z [Suspect]
     Indication: OPEN ANGLE GLAUCOMA
     Dosage: 1 GTT QD OU OPHTHALMIC
     Route: 047
     Dates: start: 20090604, end: 20090710

REACTIONS (3)
  - CONDITION AGGRAVATED [None]
  - DETACHMENT OF RETINAL PIGMENT EPITHELIUM [None]
  - MACULOPATHY [None]
